FAERS Safety Report 9404827 (Version 2)
Quarter: 2013Q3

REPORT INFORMATION
  Report Type: Spontaneous
  Country: US (occurrence: US)
  Receive Date: 20130717
  Receipt Date: 20130729
  Transmission Date: 20140515
  Serious: Yes (Other)
  Sender: FDA-Public Use
  Company Number: US-BAYER-2013-084392

PATIENT
  Age: 66 Year
  Sex: Male
  Weight: 99.77 kg

DRUGS (1)
  1. BAYER ADVANCED ASPIRIN EXTRA STRENGTH [Suspect]
     Indication: ARTHRITIS
     Dosage: 2 DF, PRN
     Route: 048
     Dates: start: 201105

REACTIONS (6)
  - Haemorrhage [Recovered/Resolved]
  - Product solubility abnormal [Recovered/Resolved]
  - Foaming at mouth [Recovered/Resolved]
  - Cough [Recovered/Resolved]
  - Throat irritation [Recovered/Resolved]
  - Oral discomfort [Recovered/Resolved]
